FAERS Safety Report 12341023 (Version 2)
Quarter: 2016Q2

REPORT INFORMATION
  Report Type: Spontaneous
  Country: ES (occurrence: ES)
  Receive Date: 20160506
  Receipt Date: 20160506
  Transmission Date: 20160815
  Serious: Yes (Other)
  Sender: FDA-Public Use
  Company Number: PHHY2016ES059538

PATIENT
  Age: 31 Year
  Sex: Female

DRUGS (11)
  1. CAPECITABINE. [Suspect]
     Active Substance: CAPECITABINE
     Indication: INVASIVE DUCTAL BREAST CARCINOMA
     Dosage: 1500 MG, QD DURING DAYS 1-14 OF EACH CYCLE
     Route: 065
  2. VALPROIC ACID SANDOZ [Suspect]
     Active Substance: VALPROIC ACID
     Indication: SEIZURE
     Dosage: 500 MG/8 H
     Route: 065
  3. LAPATINIB [Interacting]
     Active Substance: LAPATINIB
     Dosage: 1000 MG, QD
     Route: 065
  4. LAPATINIB [Interacting]
     Active Substance: LAPATINIB
     Dosage: 750 MG, QD
     Route: 065
  5. LAPATINIB [Interacting]
     Active Substance: LAPATINIB
     Indication: INVASIVE DUCTAL BREAST CARCINOMA
     Dosage: 1250 MG, QD DURING DAYS 1-14 OF EACH CYCLE
     Route: 065
  6. LAPATINIB [Interacting]
     Active Substance: LAPATINIB
     Dosage: 1000 MG/24 HOURS
     Route: 065
  7. CAPECITABINE. [Suspect]
     Active Substance: CAPECITABINE
     Dosage: 1300 MG/ 12H
     Route: 065
  8. VALPROIC ACID SANDOZ [Interacting]
     Active Substance: VALPROIC ACID
     Dosage: 500 MG/12 H
     Route: 065
  9. LEVETIRACETAM. [Concomitant]
     Active Substance: LEVETIRACETAM
     Indication: SEIZURE
     Dosage: 1000 MG/12 H
     Route: 065
  10. LETROZOLE. [Concomitant]
     Active Substance: LETROZOLE
     Indication: INVASIVE DUCTAL BREAST CARCINOMA
     Route: 065
  11. DEXAMETHASONE. [Concomitant]
     Active Substance: DEXAMETHASONE
     Indication: PERITUMOURAL OEDEMA

REACTIONS (14)
  - Skin discolouration [Recovering/Resolving]
  - Transaminases increased [Recovering/Resolving]
  - Drug interaction [Recovering/Resolving]
  - Food interaction [Unknown]
  - Diarrhoea [Recovering/Resolving]
  - Blood bilirubin increased [Recovering/Resolving]
  - Asthenia [Recovering/Resolving]
  - Vomiting [Recovering/Resolving]
  - Drug administration error [Unknown]
  - Hepatotoxicity [Recovering/Resolving]
  - Nausea [Recovering/Resolving]
  - Oropharyngeal candidiasis [Recovering/Resolving]
  - Abdominal pain [Recovering/Resolving]
  - Mucosal inflammation [Recovering/Resolving]
